FAERS Safety Report 7893503-9 (Version None)
Quarter: 2011Q4

REPORT INFORMATION
  Report Type: 
  Country: None (occurrence: None)
  Receive Date: 20111104
  Receipt Date: 20111026
  Transmission Date: 20120403
  Serious: Yes (Other)
  Sender: FDA-Public Use
  Company Number: FR-BRISTOL-MYERS SQUIBB COMPANY-16203275

PATIENT
  Age: 60 Year
  Sex: Male

DRUGS (3)
  1. NORVIR [Suspect]
     Indication: HIV INFECTION
     Route: 048
     Dates: start: 20110708, end: 20110920
  2. REYATAZ [Suspect]
     Indication: HIV INFECTION
     Route: 048
     Dates: start: 20110708, end: 20110809
  3. TRUVADA [Suspect]
     Indication: HIV INFECTION
     Dosage: 1DF:1 INTAKE DAILY
     Route: 048
     Dates: start: 20110708, end: 20110920

REACTIONS (7)
  - ROTATOR CUFF SYNDROME [None]
  - OCULAR ICTERUS [None]
  - NAUSEA [None]
  - FLATULENCE [None]
  - DIZZINESS [None]
  - SLEEP DISORDER [None]
  - TENOSYNOVITIS [None]
